FAERS Safety Report 12186080 (Version 1)
Quarter: 2016Q1

REPORT INFORMATION
  Report Type: Spontaneous
  Country: US (occurrence: US)
  Receive Date: 20160317
  Receipt Date: 20160317
  Transmission Date: 20160526
  Serious: No
  Sender: FDA-Public Use
  Company Number: PHEH2016US006203

PATIENT
  Age: 9 Year
  Sex: Female

DRUGS (1)
  1. JADENU [Suspect]
     Active Substance: DEFERASIROX
     Indication: IRON OVERLOAD
     Dosage: 14 MG, QD
     Route: 048
     Dates: start: 20151010, end: 20151110

REACTIONS (1)
  - Blood creatine increased [Unknown]

NARRATIVE: CASE EVENT DATE: 20160310
